FAERS Safety Report 7596052-0 (Version None)
Quarter: 2011Q3

REPORT INFORMATION
  Report Type: 
  Country: None (occurrence: None)
  Receive Date: 20110707
  Receipt Date: 20110705
  Transmission Date: 20111222
  Serious: Yes (Other)
  Sender: FDA-Public Use
  Company Number: CH-PFIZER INC-2011149893

PATIENT
  Age: 30 Year
  Sex: Female

DRUGS (2)
  1. EFFEXOR [Suspect]
     Dosage: DOSE TAPERED
     Dates: end: 20110601
  2. EFFEXOR [Suspect]
     Dosage: 112.5 MG, UNK

REACTIONS (7)
  - DECREASED APPETITE [None]
  - DRUG WITHDRAWAL SYNDROME [None]
  - BLOOD PRESSURE ABNORMAL [None]
  - NERVOUSNESS [None]
  - AUTONOMIC NERVOUS SYSTEM IMBALANCE [None]
  - ANXIETY DISORDER [None]
  - TREMOR [None]
